FAERS Safety Report 18311798 (Version 1)
Quarter: 2020Q3

REPORT INFORMATION
  Report Type: Spontaneous
  Country: US (occurrence: US)
  Receive Date: 20200924
  Receipt Date: 20200924
  Transmission Date: 20201103
  Serious: No
  Sender: FDA-Public Use
  Company Number: None

PATIENT
  Age: 50 Year
  Sex: Male

DRUGS (1)
  1. EDOXABAN( EDOXABAN 60MG TAB) [Suspect]
     Active Substance: EDOXABAN
     Route: 048

REACTIONS (6)
  - Myalgia [None]
  - Pain [None]
  - Oropharyngeal pain [None]
  - Acute kidney injury [None]
  - Peripheral vascular disorder [None]
  - Haemoglobin decreased [None]

NARRATIVE: CASE EVENT DATE: 20181216
